FAERS Safety Report 8615220-X (Version None)
Quarter: 2012Q3

REPORT INFORMATION
  Report Type: 
  Country: None (occurrence: None)
  Receive Date: 20120823
  Receipt Date: 20120814
  Transmission Date: 20120928
  Serious: Yes (Other)
  Sender: FDA-Public Use
  Company Number: US-009507513-1208USA004169

PATIENT

DRUGS (6)
  1. PREDNISONE TAB [Concomitant]
     Dosage: 10 MG, QD
  2. IRBESARTAN [Concomitant]
     Dosage: 300 MG, QD
  3. METOPROLOL TARTRATE [Concomitant]
     Dosage: 50 MG, QD
  4. SIMVASTATIN [Concomitant]
     Indication: BLOOD CHOLESTEROL INCREASED
     Dosage: 40 MG, QD
  5. MYCOPHENOLATE MOFETIL (CELLCEPT) [Concomitant]
     Dosage: 3 DF, QD
  6. IMPLANON [Suspect]
     Indication: CONTRACEPTION
     Dosage: 1 DF, UNK
     Dates: start: 20100801

REACTIONS (1)
  - SYSTEMIC LUPUS ERYTHEMATOSUS [None]
